FAERS Safety Report 4791671-9 (Version None)
Quarter: 2005Q4

REPORT INFORMATION
  Report Type: 
  Country: None (occurrence: None)
  Receive Date: 20051005
  Receipt Date: 20050314
  Transmission Date: 20060501
  Serious: Yes (Life-Threatening, Hospitalization)
  Sender: FDA-Public Use
  Company Number: 10577

PATIENT
  Age: 74 Year
  Sex: Female
  Weight: 64 kg

DRUGS (4)
  1. CARBOPLATIN [Suspect]
     Indication: SMALL CELL LUNG CANCER METASTATIC
     Dosage: 690 MG IV
     Route: 042
     Dates: start: 20050104, end: 20050104
  2. ETOPOSIDE [Suspect]
     Indication: SMALL CELL LUNG CANCER METASTATIC
     Dosage: 160 MG 3/WK IV
     Route: 042
     Dates: start: 20050106, end: 20050106
  3. AMOXICILLIN [Concomitant]
  4. LEVOFLOXACIN [Concomitant]

REACTIONS (3)
  - CONTUSION [None]
  - PANCYTOPENIA [None]
  - THROMBOSIS [None]
